FAERS Safety Report 17635949 (Version 4)
Quarter: 2022Q1

REPORT INFORMATION
  Report Type: Report from Study
  Country: US (occurrence: None)
  Receive Date: 20200407
  Receipt Date: 20220302
  Transmission Date: 20220424
  Serious: Yes (Hospitalization)
  Sender: FDA-Public Use
  Company Number: US-ROCHE-2573762

PATIENT
  Age: 50 Year
  Sex: Male
  Weight: 64 kg

DRUGS (10)
  1. OBINUTUZUMAB [Suspect]
     Active Substance: OBINUTUZUMAB
     Indication: Chronic lymphocytic leukaemia
     Dosage: ON DAY 1, CYCLE 1?LAST ADMINISTERED DATE OF OBIUTUZUMAB :13/DEC/2019
     Route: 042
     Dates: start: 20190723
  2. OBINUTUZUMAB [Suspect]
     Active Substance: OBINUTUZUMAB
     Dosage: ON DAY 2, CYCLE 1
     Route: 042
  3. OBINUTUZUMAB [Suspect]
     Active Substance: OBINUTUZUMAB
     Dosage: 1000 MG ON DAY 8, CYCLE 1 1000 MG IV ON DAY 15, CYCLE 1 1000 MG IV ON DAY 1, CYCLE 2-6, LAST ADMINIS
     Route: 042
  4. VENETOCLAX [Suspect]
     Active Substance: VENETOCLAX
     Indication: Chronic lymphocytic leukaemia
     Dosage: DAYS 1-7 CYCLE 3?LAST ADMINISTERED DATE OF VENETOCLAX: 26/FEB/2020?FOR CYCLES 8-10, AGENT WAS ADMINI
     Route: 048
     Dates: start: 20190917
  5. VENETOCLAX [Suspect]
     Active Substance: VENETOCLAX
     Dosage: DAYS 8-14, CYCLE 3
     Route: 048
  6. VENETOCLAX [Suspect]
     Active Substance: VENETOCLAX
     Dosage: DAYS 15-21, CYCLE 3
     Route: 048
  7. VENETOCLAX [Suspect]
     Active Substance: VENETOCLAX
     Dosage: DAYS 22-28, CYCLE 3
     Route: 048
  8. VENETOCLAX [Suspect]
     Active Substance: VENETOCLAX
     Dosage: 400 MG PO QD DAYS 1-28, CYCLES 4-14, LAST ADMINISTERED DATE: 26-FEB-2020, TOTAL DOSE ADMINISTERED TH
     Route: 048
  9. IBRUTINIB [Suspect]
     Active Substance: IBRUTINIB
     Indication: Chronic lymphocytic leukaemia
     Dosage: ON DAYS 1-28, CYCLES 1-19, ?LAST ADMINISTERED DATE OF IBRUTINIB: 26-FEB-2020, TOTAL DOSE ADMINISTERE
     Route: 048
     Dates: start: 20190723
  10. IBRUTINIB [Suspect]
     Active Substance: IBRUTINIB
     Route: 048
     Dates: start: 20200407, end: 20200501

REACTIONS (9)
  - Pyrexia [Recovered/Resolved]
  - Alanine aminotransferase increased [Recovered/Resolved]
  - Myalgia [Recovered/Resolved]
  - Aspartate aminotransferase increased [Recovered/Resolved]
  - Joint effusion [Recovered/Resolved]
  - Arthritis [Recovered/Resolved]
  - Urethritis [Recovered/Resolved]
  - Scleral disorder [Recovered/Resolved]
  - Hyperbilirubinaemia [Recovered/Resolved]

NARRATIVE: CASE EVENT DATE: 20200226
